FAERS Safety Report 24250752 (Version 1)
Quarter: 2024Q3

REPORT INFORMATION
  Report Type: Spontaneous
  Country: US (occurrence: US)
  Receive Date: 20240826
  Receipt Date: 20240826
  Transmission Date: 20241017
  Serious: No
  Sender: MEDEXUS PHARMA
  Company Number: US-MEDEXUS PHARMA, INC.-2023MED00580

PATIENT
  Age: 72 Year
  Sex: Female

DRUGS (10)
  1. RASUVO [Suspect]
     Active Substance: METHOTREXATE SODIUM
     Indication: Rheumatoid arthritis
     Dosage: 25 MG INJECTED ON UPPER LEG OR STOMACH, 1X/WEEK ON FRIDAYS
     Route: 065
     Dates: start: 2023
  2. HUMIRA [Concomitant]
     Active Substance: ADALIMUMAB
  3. CALCIUM [Concomitant]
     Active Substance: CALCIUM
  4. VITAMINS NOS [Concomitant]
     Active Substance: VITAMINS
  5. VITAMIN D NOS [Concomitant]
     Active Substance: CHOLECALCIFEROL\ERGOCALCIFEROL
  6. VITAMIN C [Concomitant]
     Active Substance: ASCORBIC ACID
  7. OMEPRAZOLE [Concomitant]
     Active Substance: OMEPRAZOLE
  8. FOLIC ACID [Concomitant]
     Active Substance: FOLIC ACID
  9. UNSPECIFIED INGREDIENT [Concomitant]
     Active Substance: UNSPECIFIED INGREDIENT
  10. UNSPECIFIED LOW DOSAGE BLOOD PRESSURE MEDICATION [Concomitant]

REACTIONS (2)
  - Illness [Recovering/Resolving]
  - Viral pharyngitis [Recovering/Resolving]

NARRATIVE: CASE EVENT DATE: 20231201
